FAERS Safety Report 20911700 (Version 4)
Quarter: 2022Q3

REPORT INFORMATION
  Report Type: Spontaneous
  Country: US (occurrence: US)
  Receive Date: 20220603
  Receipt Date: 20220805
  Transmission Date: 20221026
  Serious: Yes (Hospitalization)
  Sender: FDA-Public Use
  Company Number: US-PFIZER INC-202200787556

PATIENT
  Age: 81 Year
  Sex: Male
  Weight: 106.6 kg

DRUGS (2)
  1. PAXLOVID [Suspect]
     Active Substance: NIRMATRELVIR\RITONAVIR
     Indication: COVID-19 treatment
     Dosage: UNK (TOTAL OF 4 DOSES)
     Dates: start: 20220529, end: 20220530
  2. PAXLOVID [Suspect]
     Active Substance: NIRMATRELVIR\RITONAVIR
     Dosage: 2 DF, 2X/DAY (2 DOSES AM + PM 4 TOTAL)
     Dates: start: 20220530, end: 20220531

REACTIONS (4)
  - Appendicitis perforated [Recovered/Resolved]
  - Appendix disorder [Recovered/Resolved]
  - Incorrect product administration duration [Recovered/Resolved]
  - Illness [Unknown]

NARRATIVE: CASE EVENT DATE: 20220530
